FAERS Safety Report 21622441 (Version 1)
Quarter: 2022Q4

REPORT INFORMATION
  Report Type: Spontaneous
  Country: JP (occurrence: JP)
  Receive Date: 20221121
  Receipt Date: 20221121
  Transmission Date: 20230113
  Serious: Yes (Hospitalization, Other)
  Sender: FDA-Public Use
  Company Number: JP-MLMSERVICE-20200304-2195650-1

PATIENT
  Age: 70 Year
  Sex: Male

DRUGS (3)
  1. DEXAMETHASONE [Suspect]
     Active Substance: DEXAMETHASONE
     Indication: Plasma cell myeloma
     Dosage: UNK, CYCLIC (RECYCLING PERIOD OF 3 WEEKS)
     Route: 065
  2. BORTEZOMIB [Suspect]
     Active Substance: BORTEZOMIB
     Indication: Plasma cell myeloma
     Dosage: 1.3 MG/M2, CYCLIC (ON DAYS 1, 4, 8, AND 11, RECYCLING PERIOD OF 3 WEEKS)
     Route: 065
  3. LENALIDOMIDE [Suspect]
     Active Substance: LENALIDOMIDE
     Indication: Plasma cell myeloma
     Dosage: 20 MG, QD (CYCLICAL) (ON DAYS 1-14, RECYCLING PERIOD OF 3 WEEKS)
     Route: 065

REACTIONS (1)
  - Prinzmetal angina [Recovered/Resolved]
